FAERS Safety Report 4306630-X (Version None)
Quarter: 2004Q1

REPORT INFORMATION
  Report Type: 
  Country: None (occurrence: None)
  Receive Date: 20040225
  Receipt Date: 20031008
  Transmission Date: 20041129
  Serious: No
  Sender: FDA-Public Use
  Company Number: US-BRISTOL-MYERS SQUIBB COMPANY-12426656

PATIENT
  Age: 49 Year
  Sex: Female
  Weight: 68 kg

DRUGS (2)
  1. EXCEDRIN ES TABS [Suspect]
     Indication: MYALGIA
     Dates: start: 20031007, end: 20031007
  2. EXCEDRIN ES TABS [Suspect]
     Indication: HEADACHE
     Dates: start: 20031007, end: 20031007

REACTIONS (2)
  - DRUG INEFFECTIVE [None]
  - PHARMACEUTICAL PRODUCT COMPLAINT [None]
